FAERS Safety Report 10746093 (Version 1)
Quarter: 2015Q1

REPORT INFORMATION
  Report Type: Spontaneous
  Country: US (occurrence: US)
  Receive Date: 20150128
  Receipt Date: 20150128
  Transmission Date: 20150721
  Serious: No
  Sender: FDA-Public Use
  Company Number: US-009507513-1501USA006573

PATIENT
  Sex: Female

DRUGS (1)
  1. REBETOL [Suspect]
     Active Substance: RIBAVIRIN
     Dosage: 6 CAPSULES EACH DAY (AT THE SAME TIME)
     Route: 048
     Dates: start: 20150114

REACTIONS (2)
  - No adverse event [Unknown]
  - Inappropriate schedule of drug administration [Unknown]

NARRATIVE: CASE EVENT DATE: 20150114
